FAERS Safety Report 8000150-7 (Version None)
Quarter: 2011Q4

REPORT INFORMATION
  Report Type: 
  Country: None (occurrence: None)
  Receive Date: 20111220
  Receipt Date: 20111220
  Transmission Date: 20120403
  Serious: Yes (Hospitalization)
  Sender: FDA-Public Use
  Company Number: None

PATIENT
  Sex: Female
  Weight: 55 kg

DRUGS (2)
  1. CARBOPLATIN [Suspect]
     Dosage: 357 MG
     Dates: end: 20110920
  2. TAXOL [Suspect]
     Dosage: 113 MG
     Dates: end: 20110920

REACTIONS (19)
  - COLITIS [None]
  - LARGE INTESTINAL OBSTRUCTION [None]
  - PLEURAL EFFUSION [None]
  - ABDOMINAL PAIN [None]
  - MYOCARDIAL INFARCTION [None]
  - POLYNEUROPATHY [None]
  - NEUTROPENIA [None]
  - CONSTIPATION [None]
  - HYPOTENSION [None]
  - IDIOSYNCRATIC DRUG REACTION [None]
  - ASTHENIA [None]
  - RENAL FAILURE ACUTE [None]
  - PELVIC FLUID COLLECTION [None]
  - DIZZINESS [None]
  - SEPSIS [None]
  - WEANING FAILURE [None]
  - NEUROPATHY PERIPHERAL [None]
  - HEPATIC FAILURE [None]
  - TOXICITY TO VARIOUS AGENTS [None]
